FAERS Safety Report 12522057 (Version 1)
Quarter: 2016Q3

REPORT INFORMATION
  Report Type: Spontaneous
  Country: US (occurrence: US)
  Receive Date: 20160701
  Receipt Date: 20160701
  Transmission Date: 20161109
  Serious: Yes (Hospitalization)
  Sender: FDA-Public Use
  Company Number: US-FRI-1000085075

PATIENT
  Age: 37 Year
  Sex: Female

DRUGS (9)
  1. CELEXA [Concomitant]
     Active Substance: CITALOPRAM HYDROBROMIDE
  2. TOPAMAX [Concomitant]
     Active Substance: TOPIRAMATE
  3. VRAYLAR [Suspect]
     Active Substance: CARIPRAZINE
     Indication: BIPOLAR I DISORDER
     Dosage: 1.5MG
     Route: 048
     Dates: start: 20160505, end: 20160506
  4. PRAZOSIN [Concomitant]
     Active Substance: PRAZOSIN
  5. VRAYLAR [Suspect]
     Active Substance: CARIPRAZINE
     Dosage: 3MG
     Route: 048
     Dates: start: 20160506, end: 20160511
  6. LAMICTAL [Concomitant]
     Active Substance: LAMOTRIGINE
  7. HYDROCODONE [Concomitant]
     Active Substance: HYDROCODONE
  8. CELLCEPT [Concomitant]
     Active Substance: MYCOPHENOLATE MOFETIL\MYCOPHENOLATE MOFETIL HYDROCHLORIDE
     Indication: MULTIPLE SCLEROSIS
  9. KLONOPIN [Concomitant]
     Active Substance: CLONAZEPAM

REACTIONS (1)
  - Rhabdomyolysis [Unknown]

NARRATIVE: CASE EVENT DATE: 201605
